FAERS Safety Report 4907204-X (Version None)
Quarter: 2006Q1

REPORT INFORMATION
  Report Type: 
  Country: None (occurrence: None)
  Receive Date: 20060207
  Receipt Date: 20060117
  Transmission Date: 20060701
  Serious: Yes (Hospitalization, Other)
  Sender: FDA-Public Use
  Company Number: US_0407104490

PATIENT
  Age: 44 Year
  Sex: Female
  Weight: 107.7 kg

DRUGS (26)
  1. ZYPREXA [Suspect]
     Indication: PSYCHOTIC DISORDER
     Dosage: SEE IMAGE
     Route: 048
     Dates: start: 19970421, end: 19970428
  2. ZYPREXA [Suspect]
     Indication: PSYCHOTIC DISORDER
     Dosage: SEE IMAGE
     Route: 048
     Dates: start: 19990101, end: 20020101
  3. ZYPREXA [Suspect]
     Indication: PSYCHOTIC DISORDER
     Dosage: SEE IMAGE
     Route: 048
     Dates: start: 19970505
  4. ZYPREXA [Suspect]
     Indication: PSYCHOTIC DISORDER
     Dosage: SEE IMAGE
     Route: 048
     Dates: start: 20021001
  5. ZYPREXA ZYDIS [Suspect]
     Indication: BIPOLAR DISORDER
     Dosage: 20 MG EACH EVENING, ORAL
     Route: 048
     Dates: start: 20020524, end: 20030101
  6. KEFLEX (CEFALEXIN MONHYDRATE) [Concomitant]
  7. MULTIVITAMINS NOS (MULTIVITAMINS NOS) [Concomitant]
  8. GEODON [Concomitant]
  9. QUETIAPINE FUMARATE [Concomitant]
  10. RISPERIDONE [Concomitant]
  11. HALOPERIDOL [Concomitant]
  12. NAVANE [Concomitant]
  13. DEPAKOTE [Concomitant]
  14. BUPROPION HCL [Concomitant]
  15. CELEXA [Concomitant]
  16. SYMBYAX [Concomitant]
  17. PAXIL [Concomitant]
  18. VENLAFAXINE HCL [Concomitant]
  19. LUVOX [Concomitant]
  20. INSULIN [Concomitant]
  21. LORAZEPAM (LORZEPAM) [Concomitant]
  22. ALPRAZOLAM (ALPROZALAM) [Concomitant]
  23. ARTRANE (TRIHEXYPHENIDYL HYDROCHLORIDE) [Concomitant]
  24. DEPO-PROVERA SUSPENSION/INJ [Concomitant]
  25. PROZAC [Concomitant]
  26. TRAZADONE [Concomitant]

REACTIONS (76)
  - ABDOMINAL PAIN [None]
  - ABDOMINAL PAIN UPPER [None]
  - ADRENAL DISORDER [None]
  - AMNESIA [None]
  - ANXIETY [None]
  - ANXIETY DISORDER [None]
  - BLOOD CHOLESTEROL INCREASED [None]
  - BLOOD CREATINE PHOSPHOKINASE INCREASED [None]
  - BLOOD OESTROGEN DECREASED [None]
  - BLOOD PRESSURE INCREASED [None]
  - BLOOD TRIGLYCERIDES INCREASED [None]
  - BLOOD UREA DECREASED [None]
  - BONE DENSITY DECREASED [None]
  - CARBON DIOXIDE DECREASED [None]
  - CARDIAC STRESS TEST ABNORMAL [None]
  - CHEST DISCOMFORT [None]
  - CHEST PAIN [None]
  - CHOLELITHIASIS [None]
  - CONDITION AGGRAVATED [None]
  - CONFUSIONAL STATE [None]
  - CONSTIPATION [None]
  - DEPENDENCE [None]
  - DEPRESSION [None]
  - DIABETES MELLITUS [None]
  - DIARRHOEA [None]
  - DIZZINESS [None]
  - DRUG INEFFECTIVE [None]
  - DRUG INTOLERANCE [None]
  - ELECTROCARDIOGRAM AMBULATORY ABNORMAL [None]
  - FATIGUE [None]
  - FEELING ABNORMAL [None]
  - FOOD CRAVING [None]
  - GLUCOSE URINE PRESENT [None]
  - HALLUCINATION [None]
  - HALLUCINATION, AUDITORY [None]
  - HEADACHE [None]
  - HORMONE LEVEL ABNORMAL [None]
  - HYPERTENSION [None]
  - HYPERVENTILATION [None]
  - HYPOAESTHESIA [None]
  - INCREASED APPETITE [None]
  - INFUSION SITE BRUISING [None]
  - LEUKOCYTOSIS [None]
  - LIPASE INCREASED [None]
  - MEDIASTINAL DISORDER [None]
  - MENOMETRORRHAGIA [None]
  - MENORRHAGIA [None]
  - MENTAL DISORDER [None]
  - MONOCYTE COUNT INCREASED [None]
  - MOOD ALTERED [None]
  - NAUSEA [None]
  - NEUROPATHY PERIPHERAL [None]
  - OVARIAN CYST [None]
  - PALPITATIONS [None]
  - PANCREATITIS [None]
  - PANIC ATTACK [None]
  - PARAESTHESIA [None]
  - PEPTIC ULCER [None]
  - PREMENSTRUAL SYNDROME [None]
  - PRURITUS [None]
  - REFUSAL OF TREATMENT BY PATIENT [None]
  - SEXUAL DYSFUNCTION [None]
  - SKIN BURNING SENSATION [None]
  - SLUGGISHNESS [None]
  - SOMNOLENCE [None]
  - TACHYCARDIA [None]
  - UMBILICAL HERNIA [None]
  - URINARY INCONTINENCE [None]
  - URTICARIA [None]
  - VAGINAL BURNING SENSATION [None]
  - VAGINAL DISCHARGE [None]
  - VAGINAL HAEMORRHAGE [None]
  - VISION BLURRED [None]
  - VOMITING [None]
  - WEIGHT INCREASED [None]
  - WHITE BLOOD CELL COUNT ABNORMAL [None]
